FAERS Safety Report 11777579 (Version 1)
Quarter: 2015Q4

REPORT INFORMATION
  Report Type: Spontaneous
  Country: US (occurrence: US)
  Receive Date: 20151125
  Receipt Date: 20151125
  Transmission Date: 20160304
  Serious: Yes (Hospitalization)
  Sender: FDA-Public Use
  Company Number: US-SUN PHARMACEUTICAL INDUSTRIES LTD-2015US-103906

PATIENT
  Age: 35 Year
  Sex: Female

DRUGS (1)
  1. LITHIUM. [Suspect]
     Active Substance: LITHIUM
     Indication: PRODUCT USED FOR UNKNOWN INDICATION
     Dosage: UNK
     Route: 065

REACTIONS (9)
  - Electrocardiogram QT prolonged [Recovering/Resolving]
  - Respiratory failure [Recovering/Resolving]
  - Left ventricular dysfunction [Recovering/Resolving]
  - Metabolic acidosis [Recovering/Resolving]
  - Mental status changes [Recovering/Resolving]
  - Respiratory acidosis [Recovering/Resolving]
  - Cardiomyopathy acute [Recovering/Resolving]
  - Toxicity to various agents [Recovering/Resolving]
  - Electrocardiogram T wave inversion [Recovering/Resolving]
